FAERS Safety Report 6656202-7 (Version None)
Quarter: 2010Q1

REPORT INFORMATION
  Report Type: 
  Country: None (occurrence: None)
  Receive Date: 20100329
  Receipt Date: 20100325
  Transmission Date: 20100710
  Serious: Yes (Hospitalization)
  Sender: FDA-Public Use
  Company Number: IT-TEVA-228942ISR

PATIENT
  Sex: Female

DRUGS (3)
  1. ATENOLOL [Suspect]
  2. BROMAZEPAM [Suspect]
  3. TRIAZOLAM [Suspect]

REACTIONS (3)
  - ALTERED STATE OF CONSCIOUSNESS [None]
  - SOPOR [None]
  - SYNCOPE [None]
